FAERS Safety Report 10525592 (Version 3)
Quarter: 2014Q4

REPORT INFORMATION
  Report Type: Spontaneous
  Country: CN (occurrence: CN)
  Receive Date: 20141017
  Receipt Date: 20141112
  Transmission Date: 20150528
  Serious: Yes (Hospitalization)
  Sender: FDA-Public Use
  Company Number: CN-ASTRAZENECA-2014SE62835

PATIENT
  Age: 62 Year
  Sex: Female

DRUGS (8)
  1. BETALOC ZOK [Suspect]
     Active Substance: METOPROLOL SUCCINATE
     Indication: CORONARY ARTERY DISEASE
     Route: 048
     Dates: start: 2012
  2. HERBESSER [Concomitant]
     Active Substance: DILTIAZEM HYDROCHLORIDE
     Route: 048
  3. AMARYL [Concomitant]
     Active Substance: GLIMEPIRIDE
     Route: 048
  4. GLUCOBAY [Concomitant]
     Active Substance: ACARBOSE
     Route: 048
  5. BETALOC ZOK [Suspect]
     Active Substance: METOPROLOL SUCCINATE
     Indication: CORONARY ARTERY DISEASE
     Route: 048
  6. PANCREATIC KININOGENASE [Concomitant]
     Route: 048
  7. ACARBOSE. [Concomitant]
     Active Substance: ACARBOSE
     Route: 048
  8. MICARDIS [Concomitant]
     Active Substance: TELMISARTAN
     Route: 048

REACTIONS (8)
  - Cardiac disorder [Not Recovered/Not Resolved]
  - Stress [Unknown]
  - Blood pressure fluctuation [Unknown]
  - Lipids increased [Unknown]
  - Asthenia [Not Recovered/Not Resolved]
  - Off label use [Unknown]
  - Heart rate increased [Unknown]
  - Dizziness [Unknown]

NARRATIVE: CASE EVENT DATE: 2012
